FAERS Safety Report 8960308 (Version 1)
Quarter: 2012Q4

REPORT INFORMATION
  Report Type: 
  Country: US (occurrence: US)
  Receive Date: 20121211
  Receipt Date: 20121211
  Transmission Date: 20130627
  Serious: No
  Sender: FDA-Public Use
  Company Number: US-009507513-1212USA001701

PATIENT
  Age: 26 Year
  Sex: Female

DRUGS (4)
  1. CLARITIN-D 12 HOUR [Suspect]
     Indication: HYPERSENSITIVITY
     Dosage: UNK, Unknown
     Route: 048
  2. CLARITIN-D 12 HOUR [Suspect]
     Indication: SNEEZING
  3. CLARITIN-D 12 HOUR [Suspect]
     Indication: EYE PRURITUS
  4. CLARITIN-D 12 HOUR [Suspect]
     Indication: NASAL CONGESTION

REACTIONS (1)
  - Drug effect decreased [Unknown]
